FAERS Safety Report 7479628-0 (Version None)
Quarter: 2011Q2

REPORT INFORMATION
  Report Type: 
  Country: None (occurrence: None)
  Receive Date: 20110513
  Receipt Date: 20110503
  Transmission Date: 20111010
  Serious: Yes (Other)
  Sender: FDA-Public Use
  Company Number: PHHY2011FR38418

PATIENT
  Age: 31 Year
  Sex: Male

DRUGS (2)
  1. EXTAVIA [Suspect]
     Dosage: UNK
     Route: 058
  2. EXTAVIA [Suspect]
     Dosage: 0.5 ML, UNK
     Route: 058

REACTIONS (16)
  - DISTURBANCE IN ATTENTION [None]
  - OTORRHOEA [None]
  - ASTHENOPIA [None]
  - PURULENT DISCHARGE [None]
  - PHOTOPHOBIA [None]
  - PARAESTHESIA [None]
  - HYPERSOMNIA [None]
  - INSOMNIA [None]
  - MEMORY IMPAIRMENT [None]
  - TREMOR [None]
  - COGNITIVE DISORDER [None]
  - MOVEMENT DISORDER [None]
  - HEADACHE [None]
  - FATIGUE [None]
  - NECK PAIN [None]
  - CHILLS [None]
